FAERS Safety Report 9981382 (Version 1)
Quarter: 2014Q1

REPORT INFORMATION
  Report Type: Spontaneous
  Country: US (occurrence: US)
  Receive Date: 20140307
  Receipt Date: 20140307
  Transmission Date: 20141002
  Serious: Yes (Hospitalization, Other)
  Sender: FDA-Public Use
  Company Number: US-JNJFOC-20140302842

PATIENT
  Age: 70 Year
  Sex: Female
  Weight: 76 kg

DRUGS (7)
  1. XARELTO [Suspect]
     Indication: CEREBROVASCULAR ACCIDENT PROPHYLAXIS
     Route: 048
     Dates: end: 20140224
  2. XARELTO [Suspect]
     Indication: CEREBROVASCULAR ACCIDENT PROPHYLAXIS
     Route: 048
     Dates: start: 20140225
  3. XARELTO [Suspect]
     Indication: ATRIAL FIBRILLATION
     Route: 048
     Dates: start: 20140225
  4. XARELTO [Suspect]
     Indication: ATRIAL FIBRILLATION
     Route: 048
     Dates: end: 20140224
  5. PLAVIX [Concomitant]
     Indication: CORONARY ARTERY DISEASE
     Route: 048
  6. SOTALOL [Concomitant]
     Indication: ATRIAL FIBRILLATION
     Route: 065
  7. METOPROLOL [Concomitant]
     Indication: ATRIAL FIBRILLATION
     Route: 065

REACTIONS (3)
  - International normalised ratio increased [Not Recovered/Not Resolved]
  - Myocardial infarction [Unknown]
  - Incorrect dose administered [Unknown]
